FAERS Safety Report 12270672 (Version 1)
Quarter: 2016Q2

REPORT INFORMATION
  Report Type: Spontaneous
  Country: US (occurrence: None)
  Receive Date: 20160414
  Receipt Date: 20160414
  Transmission Date: 20160815
  Serious: Yes (Life-Threatening, Disabling)
  Sender: FDA-Public Use
  Company Number: None

PATIENT
  Age: 67 Year
  Sex: Female

DRUGS (1)
  1. XIFAXAN [Suspect]
     Active Substance: RIFAXIMIN
     Indication: GASTROINTESTINAL BACTERIAL INFECTION
     Dosage: 1500MG PILLS 3 TIMES DA9ILY MOUTH?
     Route: 048
     Dates: start: 201112, end: 201207

REACTIONS (5)
  - Hepatic cyst [None]
  - Pain [None]
  - Clostridium test positive [None]
  - Gastrointestinal inflammation [None]
  - Aortic calcification [None]

NARRATIVE: CASE EVENT DATE: 201010
